FAERS Safety Report 15334179 (Version 2)
Quarter: 2019Q2

REPORT INFORMATION
  Report Type: Spontaneous
  Country: JP (occurrence: JP)
  Receive Date: 20180830
  Receipt Date: 20190624
  Transmission Date: 20190711
  Serious: Yes (Death, Hospitalization)
  Sender: FDA-Public Use
  Company Number: JP-ACTELION-A-CH2018-178145

PATIENT
  Age: 66 Year
  Sex: Female

DRUGS (3)
  1. TRACLEER [Suspect]
     Active Substance: BOSENTAN
     Indication: SCLERODERMA ASSOCIATED DIGITAL ULCER
     Dosage: 62.5 MG, BID
     Route: 048
     Dates: start: 20180611, end: 20180806
  2. ASPIRIN. [Concomitant]
     Active Substance: ASPIRIN
  3. HYDREA [Concomitant]
     Active Substance: HYDROXYUREA

REACTIONS (9)
  - Normocytic anaemia [Fatal]
  - Transfusion [Unknown]
  - Blast cells present [Fatal]
  - Aspiration bone marrow [Unknown]
  - Platelet count decreased [Fatal]
  - Acute myeloid leukaemia [Fatal]
  - Packed red blood cell transfusion [Unknown]
  - Malaise [Fatal]
  - Platelet transfusion [Unknown]

NARRATIVE: CASE EVENT DATE: 20180806
